FAERS Safety Report 4609180-6 (Version None)
Quarter: 2005Q1

REPORT INFORMATION
  Report Type: 
  Country: None (occurrence: None)
  Receive Date: 20050315
  Receipt Date: 20050113
  Transmission Date: 20050727
  Serious: Yes (Life-Threatening, Hospitalization)
  Sender: FDA-Public Use
  Company Number: US-MERCK-0501USA01729

PATIENT
  Age: 54 Year
  Sex: Male

DRUGS (1)
  1. VIOXX [Suspect]
     Indication: PAIN
     Route: 048
     Dates: start: 20010401

REACTIONS (1)
  - CEREBROVASCULAR ACCIDENT [None]
